FAERS Safety Report 16873586 (Version 2)
Quarter: 2019Q4

REPORT INFORMATION
  Report Type: Spontaneous
  Country: US (occurrence: US)
  Receive Date: 20191001
  Receipt Date: 20191007
  Transmission Date: 20200122
  Serious: Yes (Other)
  Sender: FDA-Public Use
  Company Number: US-SA-2019SA266350

PATIENT
  Age: 19 Year
  Sex: Female

DRUGS (11)
  1. TRAZODONE [Concomitant]
     Active Substance: TRAZODONE HYDROCHLORIDE
     Indication: MUSCLE STRAIN
  2. NAPROXEN. [Concomitant]
     Active Substance: NAPROXEN
     Indication: MUSCLE STRAIN
  3. QUINIDINE [Concomitant]
     Active Substance: QUINIDINE
     Indication: MUSCLE SPASMS
  4. CODEINE [Concomitant]
     Active Substance: CODEINE
     Indication: MUSCLE STRAIN
  5. QUINIDINE [Concomitant]
     Active Substance: QUINIDINE
     Indication: MUSCLE STRAIN
  6. TRAZODONE [Concomitant]
     Active Substance: TRAZODONE HYDROCHLORIDE
     Indication: MUSCLE SPASMS
  7. NAPROXEN. [Concomitant]
     Active Substance: NAPROXEN
     Indication: MUSCLE SPASMS
  8. ACETAMINOPHEN. [Concomitant]
     Active Substance: ACETAMINOPHEN
     Indication: MUSCLE STRAIN
  9. RANITIDINE. [Suspect]
     Active Substance: RANITIDINE
     Indication: ABDOMINAL SYMPTOM
     Dosage: UNK
     Route: 048
     Dates: start: 198308
  10. ACETAMINOPHEN. [Concomitant]
     Active Substance: ACETAMINOPHEN
     Indication: MUSCLE SPASMS
  11. CODEINE [Concomitant]
     Active Substance: CODEINE
     Indication: MUSCLE SPASMS

REACTIONS (6)
  - Hepatotoxicity [Unknown]
  - Chromaturia [Unknown]
  - Influenza like illness [Unknown]
  - Headache [Unknown]
  - Pyrexia [Unknown]
  - Liver function test abnormal [Unknown]

NARRATIVE: CASE EVENT DATE: 108310
